FAERS Safety Report 7335429-5 (Version None)
Quarter: 2011Q1

REPORT INFORMATION
  Report Type: 
  Country: None (occurrence: None)
  Receive Date: 20110302
  Receipt Date: 20110302
  Transmission Date: 20110831
  Serious: Yes (Hospitalization)
  Sender: FDA-Public Use
  Company Number: None

PATIENT
  Age: 28 Year
  Sex: Male
  Weight: 199 kg

DRUGS (2)
  1. POTASSIUM CHLORIDE [Suspect]
     Indication: HYPERKALAEMIA
     Dosage: 60 MG QID PO
     Route: 048
     Dates: start: 20100826, end: 20110222
  2. SPIRONOLACTONE [Suspect]
     Indication: HYPERTENSION
     Dosage: 25 MG BID PO
     Route: 048
     Dates: start: 20100826, end: 20110222

REACTIONS (1)
  - HYPERKALAEMIA [None]
